FAERS Safety Report 23815354 (Version 1)
Quarter: 2024Q2

REPORT INFORMATION
  Report Type: Spontaneous
  Country: FR (occurrence: FR)
  Receive Date: 20240503
  Receipt Date: 20240503
  Transmission Date: 20240716
  Serious: Yes (Other)
  Sender: FDA-Public Use
  Company Number: None

PATIENT
  Age: 40 Year
  Sex: Female
  Weight: 58 kg

DRUGS (5)
  1. PACLITAXEL [Suspect]
     Active Substance: PACLITAXEL
     Indication: Breast cancer
     Dosage: 132 MG EACH INFUSION?FORM OF ADMIN: 1FP
     Route: 042
     Dates: start: 20240227, end: 20240228
  2. METHYLPREDNISOLONE [Suspect]
     Active Substance: METHYLPREDNISOLONE
     Indication: Premedication
     Dosage: 80 MG PER WEEK?FORM OF ADMIN. 1FP
     Route: 042
     Dates: start: 20240227, end: 20240228
  3. OXYNORMORO 10 mg, orodispersible tablet [Concomitant]
     Indication: Pain
     Dosage: 10 MG PER DAY??1 TABLET/TAKE, MAXIMUM 6/24H, 4H INTERVAL BETWEEN 2 TAKES IN CASE OF PAIN
     Route: 048
     Dates: start: 20230208
  4. OXYCODONE MYLAN LP 10 mg, extended-release film-coated tablet [Concomitant]
     Indication: Pain
     Dosage: 20 MG PER DAY
     Route: 048
     Dates: start: 20240221
  5. TACROLIMUS [Concomitant]
     Active Substance: TACROLIMUS
     Indication: Antisynthetase syndrome
     Dosage: 10 MG PER DAY
     Route: 048
     Dates: start: 202302

REACTIONS (5)
  - Tonic clonic movements [Recovered/Resolved]
  - Vomiting [Recovered/Resolved]
  - Flushing [Recovered/Resolved]
  - Erythema [Recovered/Resolved]
  - Diarrhoea [Recovered/Resolved]

NARRATIVE: CASE EVENT DATE: 20240227
